FAERS Safety Report 9877247 (Version 2)
Quarter: 2014Q1

REPORT INFORMATION
  Report Type: Spontaneous
  Country: US (occurrence: US)
  Receive Date: 20140206
  Receipt Date: 20140207
  Transmission Date: 20141002
  Serious: No
  Sender: FDA-Public Use
  Company Number: US-009507513-1402USA000360

PATIENT
  Sex: Female

DRUGS (9)
  1. NASONEX [Suspect]
     Indication: SINUSITIS
     Dosage: 2 SPRAYS IN EACH NOSTRIL AT BEDTIME
     Route: 045
     Dates: start: 201307
  2. NASONEX [Suspect]
     Dosage: 2 SPRAYS IN EACH NOSTRIL AT BEDTIME
     Route: 045
     Dates: start: 201307
  3. ADVAIR [Concomitant]
  4. VENTOLIN (ALBUTEROL) [Concomitant]
  5. TRAMADOL HYDROCHLORIDE [Concomitant]
  6. FLEXERIL [Concomitant]
  7. BUPROPION HYDROCHLORIDE [Concomitant]
  8. PRILOSEC [Concomitant]
     Route: 048
  9. ALEVE [Concomitant]

REACTIONS (3)
  - Headache [Not Recovered/Not Resolved]
  - Drug dose omission [Unknown]
  - Product quality issue [Unknown]
